FAERS Safety Report 4478327-7 (Version None)
Quarter: 2004Q4

REPORT INFORMATION
  Report Type: 
  Country: None (occurrence: None)
  Receive Date: 20041018
  Receipt Date: 20041018
  Transmission Date: 20050328
  Serious: Yes (Life-Threatening, Hospitalization)
  Sender: FDA-Public Use
  Company Number: None

PATIENT
  Sex: Female
  Weight: 54.4316 kg

DRUGS (1)
  1. PROVIGIL [Suspect]
     Indication: ANTIDEPRESSANT THERAPY
     Dosage: 1/2 TABLET / 1/4 TABLET
     Dates: start: 20040901

REACTIONS (9)
  - BALANCE DISORDER [None]
  - CHILLS [None]
  - DISORIENTATION [None]
  - FEELING ABNORMAL [None]
  - HYPOTENSION [None]
  - MYALGIA [None]
  - NAUSEA [None]
  - PYREXIA [None]
  - VOMITING [None]
